FAERS Safety Report 12549967 (Version 3)
Quarter: 2018Q4

REPORT INFORMATION
  Report Type: Spontaneous
  Country: FR (occurrence: FR)
  Receive Date: 20160712
  Receipt Date: 20181029
  Transmission Date: 20190204
  Serious: Yes (Hospitalization)
  Sender: FDA-Public Use
  Company Number: FR-JNJFOC-20160705982

PATIENT
  Age: 38 Year
  Sex: Female

DRUGS (10)
  1. BACLOFENE [Suspect]
     Active Substance: BACLOFEN
     Indication: ALCOHOLISM
     Dosage: (3-3-3)
     Route: 048
     Dates: start: 20160613, end: 20160616
  2. LOXAPAC [Suspect]
     Active Substance: LOXAPINE
     Indication: AGGRESSION
     Dosage: 50-50-50-100GTT
     Route: 048
     Dates: start: 20160606, end: 20160704
  3. SERESTA [Concomitant]
     Active Substance: OXAZEPAM
     Indication: HYPERSOMNIA
     Route: 065
  4. MOVICOL [Concomitant]
     Active Substance: POLYETHYLENE GLYCOL 3350\POTASSIUM CHLORIDE\SODIUM BICARBONATE\SODIUM CHLORIDE
     Route: 065
  5. LOVENOX [Concomitant]
     Active Substance: ENOXAPARIN SODIUM
     Route: 065
  6. BACLOFENE [Suspect]
     Active Substance: BACLOFEN
     Indication: ALCOHOLISM
     Dosage: (6-3-3)
     Route: 048
     Dates: start: 20160616
  7. LOXAPAC [Suspect]
     Active Substance: LOXAPINE
     Indication: AGITATION
     Dosage: 50-50-50-100GTT
     Route: 048
     Dates: start: 20160606, end: 20160704
  8. BACLOFENE [Suspect]
     Active Substance: BACLOFEN
     Indication: ALCOHOLISM
     Dosage: 6TABLETS IN THE MORNING AND IN FOR MIDDAY, 3 TABLETS IN THE EVENING
     Route: 048
  9. RISPERDAL [Suspect]
     Active Substance: RISPERIDONE
     Indication: HALLUCINATION, VISUAL
     Route: 048
     Dates: start: 20160616, end: 20160622
  10. RISPERDAL [Suspect]
     Active Substance: RISPERIDONE
     Indication: HALLUCINATION, VISUAL
     Route: 048
     Dates: start: 20160606, end: 20160616

REACTIONS (12)
  - Hallucination, visual [Recovered/Resolved]
  - Logorrhoea [Unknown]
  - Psychomotor retardation [Unknown]
  - Cerebral atrophy [Unknown]
  - Hypokalaemia [Unknown]
  - Delirium tremens [Unknown]
  - Glomerular filtration rate decreased [Recovered/Resolved]
  - Agitation [Recovered/Resolved]
  - Tachycardia [Unknown]
  - Confusional state [Recovering/Resolving]
  - Disorientation [Unknown]
  - Hypomagnesaemia [Unknown]

NARRATIVE: CASE EVENT DATE: 201606
